FAERS Safety Report 20037989 (Version 1)
Quarter: 2021Q4

REPORT INFORMATION
  Report Type: Spontaneous
  Country: ID (occurrence: ID)
  Receive Date: 20211105
  Receipt Date: 20211105
  Transmission Date: 20220303
  Serious: Yes (Hospitalization)
  Sender: FDA-Public Use
  Company Number: ID-SA-SAC20211102000600

PATIENT
  Age: 52 Year
  Sex: Male

DRUGS (8)
  1. LANTUS [Suspect]
     Active Substance: INSULIN GLARGINE
     Indication: Diabetes mellitus inadequate control
     Dosage: 30 IU
     Route: 058
     Dates: start: 2018
  2. APIDRA [Suspect]
     Active Substance: INSULIN GLULISINE
     Indication: Diabetes mellitus inadequate control
     Dosage: 10 IU, BID(10-0-10 IU)
  3. METFORMIN [Concomitant]
     Active Substance: METFORMIN HYDROCHLORIDE
     Dosage: 500 MG, TID
  4. LANSOPRAZOLE [Concomitant]
     Active Substance: LANSOPRAZOLE
     Dosage: 30 MG
  5. SUCRALFATE [Concomitant]
     Active Substance: SUCRALFATE
     Dosage: 3X1
  6. GABAPENTIN [Concomitant]
     Active Substance: GABAPENTIN
     Dosage: 1X100
  7. SIMVASTATIN [Concomitant]
     Active Substance: SIMVASTATIN
     Dosage: 20 MG, QD(1X20MG)
  8. NEURODEX [Concomitant]
     Dosage: 1 DF, QD(1X1)

REACTIONS (4)
  - Dyspnoea [Recovered/Resolved]
  - Nausea [Recovered/Resolved]
  - Vomiting [Recovered/Resolved]
  - Decreased appetite [Recovered/Resolved]

NARRATIVE: CASE EVENT DATE: 20200828
